FAERS Safety Report 23964849 (Version 1)
Quarter: 2024Q2

REPORT INFORMATION
  Report Type: Report from Study
  Country: AT (occurrence: AT)
  Receive Date: 20240612
  Receipt Date: 20240612
  Transmission Date: 20240716
  Serious: Yes (Hospitalization)
  Sender: FDA-Public Use
  Company Number: AT-EMA-DD-20230602-6644853-173053

PATIENT

DRUGS (36)
  1. TRASTUZUMAB [Suspect]
     Active Substance: TRASTUZUMAB
     Indication: HER2 positive breast cancer
     Dosage: 464 MG, EVERY 3 WEEKS (MOST RECENT DOSE PRIOR TO THE EVENT: 21/SEP/2018), SOLUTION FOR INFUSION
     Route: 042
     Dates: start: 20180810, end: 20180810
  2. TRASTUZUMAB [Suspect]
     Active Substance: TRASTUZUMAB
     Dosage: 336 MILLIGRAM, Q3W
     Route: 042
     Dates: start: 20180921, end: 20181106
  3. DENOSUMAB [Suspect]
     Active Substance: DENOSUMAB
     Indication: HER2 positive breast cancer
     Dosage: 120 MILLIGRAM, EVERY 4 WEEKS
     Route: 058
     Dates: start: 20181012
  4. LETROZOLE [Suspect]
     Active Substance: LETROZOLE
     Indication: Breast cancer metastatic
     Dosage: 2.5 MILLIGRAM, QD, OD - ONCE DAILY
     Route: 048
     Dates: start: 20181029
  5. ONTRUZANT [Suspect]
     Active Substance: TRASTUZUMAB-DTTB
     Indication: HER2 positive breast cancer
     Dosage: 336 MILLIGRAM, Q3W
     Route: 042
     Dates: start: 20181130, end: 20190111
  6. ONTRUZANT [Suspect]
     Active Substance: TRASTUZUMAB-DTTB
     Dosage: 300 MILLIGRAM, Q3W
     Route: 042
     Dates: start: 20190201, end: 20190315
  7. ONTRUZANT [Suspect]
     Active Substance: TRASTUZUMAB-DTTB
     Dosage: 330 MILLIGRAM, Q3W
     Route: 042
     Dates: start: 20190405, end: 20190517
  8. ONTRUZANT [Suspect]
     Active Substance: TRASTUZUMAB-DTTB
     Dosage: 348 MILLIGRAM, Q3W
     Route: 042
     Dates: start: 20190607, end: 20200221
  9. ONTRUZANT [Suspect]
     Active Substance: TRASTUZUMAB-DTTB
     Dosage: 360 MILLIGRAM, Q3W
     Route: 042
     Dates: start: 20200424, end: 20220928
  10. PERTUZUMAB [Suspect]
     Active Substance: PERTUZUMAB
     Indication: HER2 positive breast cancer
     Dosage: 420 MILLIGRAM, Q3W
     Route: 042
     Dates: start: 20180921, end: 20190201
  11. PERTUZUMAB [Suspect]
     Active Substance: PERTUZUMAB
     Dosage: 840 MILLIGRAM, Q3W, EVERY 3 WEEKS (MOST RECENT DOSE PRIOR TO THE EVENT: 21/SEP/2018)
     Route: 042
     Dates: start: 20180810, end: 20180810
  12. PACLITAXEL [Suspect]
     Active Substance: PACLITAXEL
     Indication: HER2 positive breast cancer
     Dosage: 129.61 MG, EVERY WEEK
     Route: 042
     Dates: start: 20180810, end: 20180824
  13. PACLITAXEL [Suspect]
     Active Substance: PACLITAXEL
     Dosage: UNK
     Route: 042
  14. PACLITAXEL [Suspect]
     Active Substance: PACLITAXEL
     Dosage: 279.32 MG, EVERY WEEK
     Route: 042
     Dates: start: 20180921, end: 20180921
  15. PACLITAXEL [Suspect]
     Active Substance: PACLITAXEL
     Dosage: 127.69 MILLIGRAM, QWEEK
     Route: 042
     Dates: start: 20180928, end: 20181019
  16. DEXABENE [Concomitant]
     Indication: Product used for unknown indication
     Dosage: 20 MILLIGRAM, QWEEK,ONGOING = NOT CHECKED
     Route: 065
     Dates: start: 20180810, end: 20181019
  17. DEXAGENTA POS [DEXAMETHASONE SODIUM PHOSPHATE;GENTAMICIN SULFATE] [Concomitant]
     Indication: Product used for unknown indication
     Dosage: UNK
     Route: 065
  18. DIMETHINDENE MALEATE [Concomitant]
     Active Substance: DIMETHINDENE MALEATE
     Indication: Product used for unknown indication
     Dosage: 3 MILLIGRAM, QWEEK,ONGOING = NOT CHECKED
     Route: 065
     Dates: start: 20180810, end: 20181019
  19. CALCIUM CARBONATE\CHOLECALCIFEROL [Concomitant]
     Active Substance: CALCIUM CARBONATE\CHOLECALCIFEROL
     Indication: Product used for unknown indication
     Dosage: UNK
     Route: 065
     Dates: start: 20191230
  20. LEVOCETIRIZINE DIHYDROCHLORIDE [Concomitant]
     Active Substance: LEVOCETIRIZINE DIHYDROCHLORIDE
     Indication: Product used for unknown indication
     Dosage: 5 MILLIGRAM
     Route: 065
     Dates: end: 20221215
  21. CIPRALEX [Concomitant]
     Active Substance: ESCITALOPRAM OXALATE
     Indication: Product used for unknown indication
     Dosage: 5 MILLIGRAM, QD
     Route: 065
     Dates: start: 201901
  22. GLUCOPHAGE [Concomitant]
     Active Substance: METFORMIN HYDROCHLORIDE
     Indication: Diabetes mellitus
     Dosage: 500 MILLIGRAM
     Route: 065
  23. PREGABALIN [Concomitant]
     Active Substance: PREGABALIN
     Indication: Product used for unknown indication
     Dosage: UNK
     Route: 065
  24. LISINOPRIL [Concomitant]
     Active Substance: LISINOPRIL
     Indication: Product used for unknown indication
     Dosage: 20 MILLIGRAM, QD,ONGOING = CHECKED
     Route: 065
  25. METOPROLOL [Concomitant]
     Active Substance: METOPROLOL
     Indication: Product used for unknown indication
     Dosage: 47.5 MILLIGRAM, QD, ONGOING = CHECKED
     Route: 065
  26. RIVASTIGMINE [Concomitant]
     Active Substance: RIVASTIGMINE
     Indication: Product used for unknown indication
     Dosage: UNK
     Route: 065
  27. VITAMINS WITH MINERALS [Concomitant]
     Active Substance: MINERALS\VITAMINS
     Indication: Product used for unknown indication
     Dosage: UNK, ONGOING = CHECKED
     Route: 065
     Dates: start: 20181029
  28. OLEOVIT [RETINOL] [Concomitant]
     Indication: Product used for unknown indication
     Dosage: 28 GTT DROPS, QD
     Route: 065
     Dates: start: 20221213
  29. KYTRIL [Concomitant]
     Active Substance: GRANISETRON HYDROCHLORIDE
     Indication: Product used for unknown indication
     Dosage: 3 MILLIGRAM, ONGOING = NOT CHECKED
     Route: 065
     Dates: start: 20180810, end: 20181019
  30. RANITIDINE HYDROCHLORIDE [Concomitant]
     Active Substance: RANITIDINE HYDROCHLORIDE
     Indication: Product used for unknown indication
     Dosage: 4 MILLIGRAM, ONGOING = NOT CHECKED
     Route: 065
     Dates: start: 20180810, end: 20181019
  31. CITRIC ACID MONOHYDRATE\POTASSIUM BICARBONATE\POTASSIUM CITRATE [Concomitant]
     Active Substance: CITRIC ACID MONOHYDRATE\POTASSIUM BICARBONATE\POTASSIUM CITRATE
     Indication: Product used for unknown indication
     Dosage: UNK
     Route: 065
  32. DULCOLAX (BISACODYL) [Concomitant]
     Active Substance: BISACODYL
     Indication: Product used for unknown indication
     Dosage: UNK
     Route: 065
  33. ASPIRIN [Concomitant]
     Active Substance: ASPIRIN
     Indication: Product used for unknown indication
     Dosage: 100 MILLIGRAM, QD, ONGOING = CHECKED
     Route: 065
     Dates: start: 20181012, end: 20181115
  34. DIPYRONE [Concomitant]
     Active Substance: DIPYRONE
     Indication: Pain
     Dosage: 25 GTT DROPS
     Route: 065
     Dates: start: 20221220
  35. AMLODIPINE [Concomitant]
     Active Substance: AMLODIPINE BESYLATE
     Indication: Product used for unknown indication
     Dosage: 5 MILLIGRAM, ONGOING = CHECKED
     Route: 065
     Dates: start: 201812
  36. PANTOPRAZOLE SODIUM [Concomitant]
     Active Substance: PANTOPRAZOLE SODIUM
     Indication: Product used for unknown indication
     Dosage: 40 MILLIGRAM
     Route: 065

REACTIONS (7)
  - Lymphoedema [Recovered/Resolved]
  - Oedema peripheral [Recovered/Resolved]
  - Anaemia [Recovered/Resolved]
  - Fatigue [Recovered/Resolved]
  - Epistaxis [Recovered/Resolved]
  - Nausea [Recovered/Resolved]
  - Abdominal pain [Recovered/Resolved]

NARRATIVE: CASE EVENT DATE: 20180928
